FAERS Safety Report 8159566-0 (Version None)
Quarter: 2012Q1

REPORT INFORMATION
  Report Type: 
  Country: None (occurrence: None)
  Receive Date: 20120223
  Receipt Date: 20120221
  Transmission Date: 20120608
  Serious: No
  Sender: FDA-Public Use
  Company Number: US-PFIZER INC-2012045989

PATIENT
  Sex: Female
  Weight: 68 kg

DRUGS (3)
  1. EFFEXOR XR [Concomitant]
     Indication: DEPRESSION
     Dosage: UNK, 1X/DAY
     Route: 065
  2. LAMICTAL [Concomitant]
     Dosage: UNK, 1X/DAY
     Route: 065
  3. IBUPROFEN (ADVIL) [Suspect]
     Indication: MUSCLE STRAIN
     Dosage: 2 DF, EVERY 4 HRS
     Route: 048
     Dates: start: 20120213, end: 20120220

REACTIONS (1)
  - INSOMNIA [None]
